FAERS Safety Report 11864008 (Version 3)
Quarter: 2016Q1

REPORT INFORMATION
  Report Type: Spontaneous
  Country: JP (occurrence: JP)
  Receive Date: 20151223
  Receipt Date: 20160108
  Transmission Date: 20160526
  Serious: Yes (Life-Threatening, Hospitalization, Other)
  Sender: FDA-Public Use
  Company Number: JP-GLAXOSMITHKLINE-JP2015JPN178884

PATIENT
  Sex: Female

DRUGS (10)
  1. LAMICTAL [Suspect]
     Active Substance: LAMOTRIGINE
     Indication: BIPOLAR DISORDER
     Dosage: 5 MG, QD
     Route: 048
     Dates: start: 20090804, end: 20091015
  2. LAMICTAL [Suspect]
     Active Substance: LAMOTRIGINE
     Dosage: 10 MG, QD
     Route: 048
     Dates: start: 20091015, end: 20100221
  3. LAMICTAL [Suspect]
     Active Substance: LAMOTRIGINE
     Dosage: 20 MG, QD
     Route: 048
     Dates: start: 20100301, end: 20100322
  4. HALCION [Concomitant]
     Active Substance: TRIAZOLAM
     Dosage: 30 DF, 1D
  5. HALCION [Concomitant]
     Active Substance: TRIAZOLAM
     Indication: INSOMNIA
     Dosage: UNK
  6. LAMICTAL [Suspect]
     Active Substance: LAMOTRIGINE
     Dosage: 75 MG, BID
     Route: 048
     Dates: start: 20120105, end: 20151126
  7. LAMICTAL [Suspect]
     Active Substance: LAMOTRIGINE
     Dosage: 1500 MG, 1D
     Route: 048
  8. LAMICTAL [Suspect]
     Active Substance: LAMOTRIGINE
     Dosage: UNK UNK, BID
     Route: 048
     Dates: start: 20100222, end: 20100228
  9. LAMICTAL [Suspect]
     Active Substance: LAMOTRIGINE
     Dosage: UNK UNK, BID
     Route: 048
     Dates: start: 20100323, end: 20100405
  10. LAMICTAL [Suspect]
     Active Substance: LAMOTRIGINE
     Dosage: 50 MG, BID
     Route: 048
     Dates: start: 20100406, end: 20120104

REACTIONS (2)
  - Suicide attempt [Recovered/Resolved]
  - Intentional overdose [Unknown]
